FAERS Safety Report 18266263 (Version 2)
Quarter: 2020Q4

REPORT INFORMATION
  Report Type: Spontaneous
  Country: US (occurrence: US)
  Receive Date: 20200915
  Receipt Date: 20201130
  Transmission Date: 20210113
  Serious: Yes (Death, Hospitalization, Other)
  Sender: FDA-Public Use
  Company Number: US-ASTRAZENECA-2020SF16760

PATIENT
  Age: 23989 Day
  Sex: Female

DRUGS (20)
  1. CEFTRIAXONE SODIUM. [Concomitant]
     Active Substance: CEFTRIAXONE SODIUM
  2. HYZAAR [Concomitant]
     Active Substance: HYDROCHLOROTHIAZIDE\LOSARTAN POTASSIUM
  3. LANTUS [Concomitant]
     Active Substance: INSULIN GLARGINE
  4. MIDAZOLAM HYDROCHLORIDE. [Concomitant]
     Active Substance: MIDAZOLAM HYDROCHLORIDE
  5. KOMBIGLYZE XR [Suspect]
     Active Substance: METFORMIN HYDROCHLORIDE\SAXAGLIPTIN HYDROCHLORIDE
     Indication: TYPE 2 DIABETES MELLITUS
     Dosage: 2.5-1000 MG
     Route: 048
     Dates: start: 20121205, end: 20130309
  6. DOXYCYCLINE. [Concomitant]
     Active Substance: DOXYCYCLINE
  7. KOMBIGLYZE XR [Suspect]
     Active Substance: METFORMIN HYDROCHLORIDE\SAXAGLIPTIN HYDROCHLORIDE
     Indication: TYPE 2 DIABETES MELLITUS
     Route: 048
     Dates: start: 201212
  8. NOVOLIN NOS [Concomitant]
     Active Substance: INSULIN HUMAN
  9. ASPIRIN. [Concomitant]
     Active Substance: ASPIRIN
  10. METHYLPREDNISOLONE. [Concomitant]
     Active Substance: METHYLPREDNISOLONE
  11. KEFLEX [Concomitant]
     Active Substance: CEPHALEXIN
  12. AMOXICILLIN. [Concomitant]
     Active Substance: AMOXICILLIN
  13. LOSARTAN. [Concomitant]
     Active Substance: LOSARTAN
  14. EPIPEN [Concomitant]
     Active Substance: EPINEPHRINE
  15. METFORMIN [Concomitant]
     Active Substance: METFORMIN HYDROCHLORIDE
  16. KOMBIGLYZE XR [Suspect]
     Active Substance: METFORMIN HYDROCHLORIDE\SAXAGLIPTIN HYDROCHLORIDE
     Indication: TYPE 2 DIABETES MELLITUS
     Dosage: 2.5-1000 MG, ONE TABLET BY MOUTH TWICE DAILY
     Route: 048
     Dates: start: 20121205
  17. FUROSEMIDE. [Concomitant]
     Active Substance: FUROSEMIDE
  18. HYDROCORTISONE. [Concomitant]
     Active Substance: HYDROCORTISONE
  19. IMODIUM [Concomitant]
     Active Substance: LOPERAMIDE HYDROCHLORIDE
  20. FERROUS SULF [Concomitant]
     Active Substance: FERROUS SULFATE

REACTIONS (4)
  - End stage renal disease [Fatal]
  - Diabetes mellitus inadequate control [Fatal]
  - Cardiac failure congestive [Unknown]
  - Hypertension [Fatal]

NARRATIVE: CASE EVENT DATE: 20130309
